FAERS Safety Report 6508810-1 (Version None)
Quarter: 2009Q4

REPORT INFORMATION
  Report Type: 
  Country: None (occurrence: None)
  Receive Date: 20091221
  Receipt Date: 20090817
  Transmission Date: 20100525
  Serious: No
  Sender: FDA-Public Use
  Company Number: US-ASTRAZENECA-2009SE08506

PATIENT
  Age: 68 Year
  Sex: Male
  Weight: 81.6 kg

DRUGS (4)
  1. CRESTOR [Suspect]
     Indication: BLOOD CHOLESTEROL INCREASED
     Route: 048
     Dates: start: 20060101, end: 20090701
  2. CRESTOR [Suspect]
     Route: 048
     Dates: start: 20090701
  3. DIOVAN [Concomitant]
     Indication: HYPERTENSION
  4. PROSCAR [Concomitant]

REACTIONS (2)
  - ARTHRALGIA [None]
  - LIMB INJURY [None]
